FAERS Safety Report 18736197 (Version 3)
Quarter: 2021Q1

REPORT INFORMATION
  Report Type: Spontaneous
  Country: IT (occurrence: IT)
  Receive Date: 20210113
  Receipt Date: 20210219
  Transmission Date: 20210419
  Serious: Yes (Other)
  Sender: FDA-Public Use
  Company Number: NVSC2021IT006306

PATIENT
  Age: 45 Year
  Sex: Female

DRUGS (1)
  1. ADALIMUMAB [Suspect]
     Active Substance: ADALIMUMAB
     Indication: ACNE CYSTIC
     Dosage: 40 MG, Q2W (EVERY 2 WEEKS)
     Route: 065

REACTIONS (3)
  - Product use in unapproved indication [Unknown]
  - Primary progressive multiple sclerosis [Unknown]
  - Off label use [Unknown]
